FAERS Safety Report 7124444-2 (Version None)
Quarter: 2010Q4

REPORT INFORMATION
  Report Type: 
  Country: None (occurrence: None)
  Receive Date: 20101126
  Receipt Date: 20101109
  Transmission Date: 20110411
  Serious: Yes (Hospitalization, Other)
  Sender: FDA-Public Use
  Company Number: PHHY2010US52392

PATIENT
  Sex: Female
  Weight: 86.621 kg

DRUGS (6)
  1. DIOVAN [Suspect]
     Indication: HYPERTENSION
     Dosage: 80 MG DAILY
     Dates: start: 20050318
  2. FEMARA [Suspect]
  3. THYROID [Concomitant]
     Dosage: 75 MCG DAILY
  4. HYDROCHLOROTHIAZDE TAB [Concomitant]
     Dosage: 12.5 MG EVERY OTHER DAY
  5. CALCIUM REPLACEMENT THERAPY [Concomitant]
  6. VITAMIN D [Concomitant]

REACTIONS (10)
  - BREAST CANCER [None]
  - BREAST LUMP REMOVAL [None]
  - DIARRHOEA [None]
  - DISCOMFORT [None]
  - FALL [None]
  - OSTEOPENIA [None]
  - OSTEOPOROSIS [None]
  - PALPITATIONS [None]
  - PRURITUS [None]
  - RHINITIS SEASONAL [None]
